FAERS Safety Report 6121127-2 (Version None)
Quarter: 2009Q1

REPORT INFORMATION
  Report Type: 
  Country: None (occurrence: None)
  Receive Date: 20090317
  Receipt Date: 20090306
  Transmission Date: 20090719
  Serious: Yes (Hospitalization)
  Sender: FDA-Public Use
  Company Number: A0773196A

PATIENT
  Sex: Male
  Weight: 132.7 kg

DRUGS (6)
  1. AVANDIA [Suspect]
     Indication: DIABETES MELLITUS
     Dosage: 4MG TWICE PER DAY
     Route: 048
     Dates: start: 20010601, end: 20040701
  2. LISINOPRIL [Concomitant]
  3. RANITIDINE [Concomitant]
  4. FELODIPINE [Concomitant]
  5. FOSINOPRIL [Concomitant]
  6. CLONIDINE [Concomitant]

REACTIONS (3)
  - CARDIAC FAILURE CONGESTIVE [None]
  - CEREBROVASCULAR ACCIDENT [None]
  - FACIAL PALSY [None]
